FAERS Safety Report 6716062-2 (Version None)
Quarter: 2010Q2

REPORT INFORMATION
  Report Type: 
  Country: None (occurrence: None)
  Receive Date: 20100507
  Receipt Date: 20100503
  Transmission Date: 20101027
  Serious: Yes (Death, Life-Threatening, Hospitalization)
  Sender: FDA-Public Use
  Company Number: A0857319A

PATIENT
  Sex: Male
  Weight: 68.2 kg

DRUGS (2)
  1. TOPOTECAN [Suspect]
     Indication: NON-SMALL CELL LUNG CANCER
     Dosage: 1.1MGM2 PER DAY
     Route: 048
     Dates: start: 20100407
  2. RADIATION [Suspect]
     Indication: NON-SMALL CELL LUNG CANCER
     Dosage: 3GY PER DAY
     Dates: start: 20100407, end: 20100420

REACTIONS (6)
  - CONFUSIONAL STATE [None]
  - DYSPNOEA [None]
  - FEBRILE NEUTROPENIA [None]
  - PNEUMONIA [None]
  - SEPSIS [None]
  - THROMBOCYTOPENIA [None]
